FAERS Safety Report 5151834-X (Version None)
Quarter: 2006Q4

REPORT INFORMATION
  Report Type: 
  Country: None (occurrence: None)
  Receive Date: 20061107
  Receipt Date: 20061023
  Transmission Date: 20070319
  Serious: Yes (Death)
  Sender: FDA-Public Use
  Company Number: B0443371A

PATIENT
  Age: 24 Year
  Sex: Male

DRUGS (3)
  1. LITHIUM CARBONATE [Suspect]
     Dosage: ORAL
     Route: 048
  2. METHAMPHETAMINE HYDROCHLORIDE [Suspect]
     Dosage: ORAL
     Route: 048
  3. SERTRALINE [Suspect]
     Dosage: ORAL
     Route: 048

REACTIONS (6)
  - CARDIAC HYPERTROPHY [None]
  - CARDIO-RESPIRATORY ARREST [None]
  - CONVULSION [None]
  - LETHARGY [None]
  - OVERDOSE [None]
  - SEROTONIN SYNDROME [None]
